FAERS Safety Report 5657016-7 (Version None)
Quarter: 2008Q1

REPORT INFORMATION
  Report Type: 
  Country: None (occurrence: None)
  Receive Date: 20080310
  Receipt Date: 20080303
  Transmission Date: 20080703
  Serious: Yes (Hospitalization)
  Sender: FDA-Public Use
  Company Number: GB-ROCHE-551080

PATIENT
  Sex: Female
  Weight: 97.5 kg

DRUGS (1)
  1. ORLISTAT [Suspect]
     Indication: OBESITY
     Route: 048
     Dates: start: 20071024

REACTIONS (3)
  - DYSPNOEA [None]
  - INFECTION [None]
  - PERICARDIAL EFFUSION [None]
